FAERS Safety Report 18682228 (Version 1)
Quarter: 2020Q4

REPORT INFORMATION
  Report Type: Spontaneous
  Country: DE (occurrence: DE)
  Receive Date: 20201230
  Receipt Date: 20201230
  Transmission Date: 20210114
  Serious: Yes (Other)
  Sender: FDA-Public Use
  Company Number: NVSC2020DE158734

PATIENT
  Sex: Male

DRUGS (10)
  1. VALSARTAN - 1 A PHARMA 80 MG FILMTABLETTEN [Suspect]
     Active Substance: VALSARTAN
     Dosage: 80 MG, QD (ONCE IN MORNING)
     Route: 065
     Dates: start: 201408, end: 201412
  2. METOPROLOL. [Concomitant]
     Active Substance: METOPROLOL
     Indication: PRODUCT USED FOR UNKNOWN INDICATION
     Dosage: 8-10 (ILLEGIBLE) (3-4)
     Route: 065
  3. DICLOFENAC [Concomitant]
     Active Substance: DICLOFENAC
     Indication: PRODUCT USED FOR UNKNOWN INDICATION
     Dosage: 75 MG (1X1)
     Route: 065
  4. VALSARTAN - 1 A PHARMA 80 MG FILMTABLETTEN [Suspect]
     Active Substance: VALSARTAN
     Dosage: 80 MG, QD (ONCE IN THE MORNING)
     Route: 065
     Dates: start: 201607, end: 201701
  5. VALSARTAN DURA [Concomitant]
     Active Substance: VALSARTAN
     Indication: PRODUCT USED FOR UNKNOWN INDICATION
     Dosage: 80 MG
     Route: 065
  6. METFORMIN [Concomitant]
     Active Substance: METFORMIN HYDROCHLORIDE
     Indication: PRODUCT USED FOR UNKNOWN INDICATION
     Dosage: 1000 MG (X2)
     Route: 065
  7. PROTAPHANE [Concomitant]
     Active Substance: INSULIN HUMAN
     Indication: PRODUCT USED FOR UNKNOWN INDICATION
     Dosage: 12 [ILLEGIBLE] (1X1)
     Route: 065
  8. ASPIRIN. [Concomitant]
     Active Substance: ASPIRIN
     Indication: PRODUCT USED FOR UNKNOWN INDICATION
     Dosage: 100 MG (1X1)
     Route: 065
  9. VALSARTAN - 1 A PHARMA 80 MG FILMTABLETTEN [Suspect]
     Active Substance: VALSARTAN
     Indication: HYPERTENSION
     Dosage: 80 MG
     Route: 065
  10. ATORVASTATIN [Concomitant]
     Active Substance: ATORVASTATIN
     Indication: PRODUCT USED FOR UNKNOWN INDICATION
     Dosage: 40 MG (1X1)
     Route: 065

REACTIONS (20)
  - Type 1 diabetes mellitus [Unknown]
  - Arthropathy [Unknown]
  - Angina pectoris [Unknown]
  - Radius fracture [Unknown]
  - Quality of life decreased [Unknown]
  - Dizziness [Unknown]
  - Loss of consciousness [Unknown]
  - Migraine [Unknown]
  - Sleep disorder [Unknown]
  - Fall [Unknown]
  - Oedema [Unknown]
  - Fear [Unknown]
  - Productive cough [Unknown]
  - Chest discomfort [Unknown]
  - Nausea [Unknown]
  - Emotional distress [Unknown]
  - Palpitations [Unknown]
  - Anxiety disorder [Unknown]
  - Chest pain [Unknown]
  - Suspected product contamination [Unknown]

NARRATIVE: CASE EVENT DATE: 2014
